FAERS Safety Report 4395794-8 (Version None)
Quarter: 2004Q3

REPORT INFORMATION
  Report Type: 
  Country: None (occurrence: None)
  Receive Date: 20040709
  Receipt Date: 20040609
  Transmission Date: 20050211
  Serious: Yes (Hospitalization)
  Sender: FDA-Public Use
  Company Number: 2004213242US

PATIENT
  Age: 78 Year
  Sex: Male
  Weight: 87.1 kg

DRUGS (5)
  1. BEXTRA [Suspect]
     Indication: NECK PAIN
     Dosage: 20 MG, ORAL
     Route: 048
     Dates: start: 20040504, end: 20040511
  2. PHENOBARBITAL TAB [Concomitant]
  3. TAMBOCOR [Concomitant]
  4. TOPROL-XL [Concomitant]
  5. ASPIRIN [Concomitant]

REACTIONS (4)
  - CONFUSIONAL STATE [None]
  - HALLUCINATION [None]
  - IMPAIRED DRIVING ABILITY [None]
  - VISUAL FIELD DEFECT [None]
